FAERS Safety Report 4919963-0 (Version None)
Quarter: 2006Q1

REPORT INFORMATION
  Report Type: 
  Country: None (occurrence: None)
  Receive Date: 20060223
  Receipt Date: 20060208
  Transmission Date: 20060701
  Serious: Yes (Hospitalization)
  Sender: FDA-Public Use
  Company Number: US-AMGEN-US168628

PATIENT
  Age: 33 Year
  Sex: Male
  Weight: 75.4 kg

DRUGS (7)
  1. NEULASTA - PREFILLED SYRINGE [Suspect]
     Indication: CHEMOTHERAPY
     Route: 058
     Dates: start: 20060127, end: 20060127
  2. DOXORUBICIN HCL [Concomitant]
     Dates: start: 20060126
  3. VINBLASTINE [Concomitant]
     Dates: start: 20060126
  4. BLEOMYCIN [Concomitant]
     Dates: start: 20060126
  5. DACARBAZINE [Concomitant]
     Dates: start: 20060126
  6. ONDANSETRON [Concomitant]
     Dates: start: 20060126
  7. DEXAMETHASONE SODIUM PHOSPHATE [Concomitant]
     Dates: start: 20060126

REACTIONS (3)
  - RASH ERYTHEMATOUS [None]
  - SWELLING FACE [None]
  - THROAT TIGHTNESS [None]
